FAERS Safety Report 23907841 (Version 1)
Quarter: 2024Q2

REPORT INFORMATION
  Report Type: Spontaneous
  Country: US (occurrence: None)
  Receive Date: 20240524
  Receipt Date: 20240524
  Transmission Date: 20240716
  Serious: Yes (Hospitalization)
  Sender: FDA-Public Use
  Company Number: None

PATIENT
  Sex: Male

DRUGS (6)
  1. GAMMAGARD LIQUID [Suspect]
     Active Substance: HUMAN IMMUNOGLOBULIN G
     Indication: Heart transplant
     Dosage: 30GM DAILY X4DAYS  Q 4 WEEKS INTRAVENOUSLY
     Route: 042
     Dates: start: 202303
  2. MYCOPHENOLIC ACID [Suspect]
     Active Substance: MYCOPHENOLIC ACID
  3. TACROLUMUS [Concomitant]
  4. MYCOPHENOLATE MOFETIL [Concomitant]
  5. HEPARIN [Concomitant]
  6. NORMAL SALINE FLUSH [Concomitant]

REACTIONS (1)
  - Full blood count decreased [None]
